FAERS Safety Report 11136210 (Version 7)
Quarter: 2016Q4

REPORT INFORMATION
  Report Type: Spontaneous
  Country: US (occurrence: US)
  Receive Date: 20150526
  Receipt Date: 20161115
  Transmission Date: 20170206
  Serious: Yes (Hospitalization, Other)
  Sender: FDA-Public Use
  Company Number: US-PFIZER INC-2015173496

PATIENT
  Age: 71 Year
  Sex: Female
  Weight: 73.92 kg

DRUGS (20)
  1. REVATIO [Suspect]
     Active Substance: SILDENAFIL CITRATE
     Indication: PULMONARY ARTERIAL HYPERTENSION
     Dosage: 20 MG, 3X/DAY
     Route: 048
     Dates: start: 20150101
  2. REVATIO [Suspect]
     Active Substance: SILDENAFIL CITRATE
     Dosage: 20 MG, 3X/DAY
     Route: 048
     Dates: start: 2015
  3. DICLOFENAC EPOLAMINE [Concomitant]
     Active Substance: DICLOFENAC EPOLAMINE
     Indication: OSTEOARTHRITIS
     Dosage: 10 MG, 2X/DAY
     Dates: start: 201509
  4. FLONASE [Concomitant]
     Active Substance: FLUTICASONE PROPIONATE
     Indication: NASAL DISORDER
     Dosage: 5 ?G, 2X/DAY
  5. MORPHINE SULFATE. [Concomitant]
     Active Substance: MORPHINE SULFATE
     Indication: PAIN
     Dosage: 15 MG, 3X/DAY
  6. LORATADINE. [Concomitant]
     Active Substance: LORATADINE
     Indication: NASAL DISORDER
     Dosage: 10 MG, 1X/DAY
  7. ZOLOFT [Concomitant]
     Active Substance: SERTRALINE HYDROCHLORIDE
     Indication: DEPRESSION
     Dosage: 200 MG 1X/DAY (100 MG 2 AT BED)
  8. VANCOMYCIN [Concomitant]
     Active Substance: VANCOMYCIN
     Dosage: UNK
  9. POTASSIUM [Concomitant]
     Active Substance: POTASSIUM
     Dosage: 10 ?G, UNK
  10. PROCARDIA [Concomitant]
     Active Substance: NIFEDIPINE
     Indication: HYPERTENSION
     Dosage: 30 MG, 1X/DAY (30 MG- BEDTIME)
  11. OXYGEN. [Concomitant]
     Active Substance: OXYGEN
     Dosage: 2 LITERS CONTINUOUS  10 + BED
  12. CIPROFLOXACIN. [Concomitant]
     Active Substance: CIPROFLOXACIN
     Dosage: UNK
  13. METOPROLOL. [Concomitant]
     Active Substance: METOPROLOL
     Indication: HYPERTENSION
     Dosage: 30 MG, 1X/DAY IN THE MORNING
     Dates: start: 201001
  14. BENZTROPINE [Concomitant]
     Active Substance: BENZTROPINE
     Indication: RESTLESS LEGS SYNDROME
     Dosage: 1 MG, 2X/DAY
  15. LEVOTHYROXINE. [Concomitant]
     Active Substance: LEVOTHYROXINE
     Indication: HYPOTHYROIDISM
     Dosage: 50 ?G, 1X/DAY
  16. SIMVASTATIN. [Concomitant]
     Active Substance: SIMVASTATIN
     Indication: BLOOD CHOLESTEROL
     Dosage: 10 MG, 1X/DAY AT BEDTIME
  17. LASIX [Concomitant]
     Active Substance: FUROSEMIDE
     Indication: OEDEMA
     Dosage: 40 MG, 1X/DAY
  18. REMERON [Concomitant]
     Active Substance: MIRTAZAPINE
     Indication: INSOMNIA
     Dosage: 15 MG, 2X/DAY (100 MG 2 AT BED)
     Dates: start: 2013
  19. ADVAIR HFA [Concomitant]
     Active Substance: FLUTICASONE PROPIONATE\SALMETEROL XINAFOATE
     Indication: CHRONIC OBSTRUCTIVE PULMONARY DISEASE
     Dosage: 100/50 1 PUFF 2X DAY
  20. PRILOSEC [Concomitant]
     Active Substance: OMEPRAZOLE MAGNESIUM
     Dosage: 40 MG, 1X/DAY IN THE MORNING

REACTIONS (6)
  - Cellulitis [Unknown]
  - Infection [Recovered/Resolved]
  - Osteoarthritis [Unknown]
  - Feeling abnormal [Not Recovered/Not Resolved]
  - Enteritis [Unknown]
  - Femur fracture [Not Recovered/Not Resolved]

NARRATIVE: CASE EVENT DATE: 20150602
